FAERS Safety Report 8559245-1 (Version None)
Quarter: 2012Q3

REPORT INFORMATION
  Report Type: 
  Country: None (occurrence: None)
  Receive Date: 20120720
  Receipt Date: 20120710
  Transmission Date: 20120928
  Serious: Yes (Hospitalization)
  Sender: FDA-Public Use
  Company Number: AUR-APL-2012-02610

PATIENT
  Sex: Female

DRUGS (4)
  1. QUETIAPINE FUMARATE [Suspect]
     Indication: PRODUCT USED FOR UNKNOWN INDICATION
     Dosage: (200 MG), ORAL, TWO 200 MG AT NIGHT, ORAL, FOUR 200 MG BY MISTAKE, ORAL
     Route: 048
     Dates: start: 20120517, end: 20120601
  2. QUETIAPINE FUMARATE [Suspect]
     Indication: PRODUCT USED FOR UNKNOWN INDICATION
     Dosage: (200 MG), ORAL, TWO 200 MG AT NIGHT, ORAL, FOUR 200 MG BY MISTAKE, ORAL
     Route: 048
     Dates: start: 20120101, end: 20120101
  3. QUETIAPINE FUMARATE [Suspect]
     Indication: PRODUCT USED FOR UNKNOWN INDICATION
     Dosage: (200 MG), ORAL, TWO 200 MG AT NIGHT, ORAL, FOUR 200 MG BY MISTAKE, ORAL
     Route: 048
     Dates: start: 20120101, end: 20120101
  4. TRAMADOL HCL [Suspect]
     Indication: PRODUCT USED FOR UNKNOWN INDICATION

REACTIONS (3)
  - ACCIDENTAL EXPOSURE [None]
  - INCORRECT DOSE ADMINISTERED [None]
  - HYPERSENSITIVITY [None]
